FAERS Safety Report 20804176 (Version 1)
Quarter: 2022Q2

REPORT INFORMATION
  Report Type: Report from Study
  Country: DE (occurrence: DE)
  Receive Date: 20220509
  Receipt Date: 20220509
  Transmission Date: 20220721
  Serious: Yes (Hospitalization)
  Sender: FDA-Public Use
  Company Number: DE-JNJFOC-20220309390

PATIENT
  Age: 43 Year
  Sex: Female
  Weight: 89 kg

DRUGS (3)
  1. TRABECTEDIN [Suspect]
     Active Substance: TRABECTEDIN
     Indication: Chordoma
     Route: 042
     Dates: start: 20220209, end: 20220209
  2. OLAPARIB [Suspect]
     Active Substance: OLAPARIB
     Indication: Chordoma
     Route: 048
     Dates: start: 20220209, end: 20220217
  3. NEUPOGEN [Concomitant]
     Active Substance: FILGRASTIM
     Indication: Neutropenia
     Dosage: 30MIO IE
     Route: 065
     Dates: start: 20220221, end: 20220222

REACTIONS (1)
  - Febrile neutropenia [Recovered/Resolved]

NARRATIVE: CASE EVENT DATE: 20220223
